FAERS Safety Report 21748330 (Version 1)
Quarter: 2022Q4

REPORT INFORMATION
  Report Type: Spontaneous
  Country: US (occurrence: None)
  Receive Date: 20221217
  Receipt Date: 20221217
  Transmission Date: 20230112
  Serious: Yes (Disabling)
  Sender: FDA-Public Use
  Company Number: None

PATIENT
  Age: 25 Year
  Sex: Female
  Weight: 90 kg

DRUGS (6)
  1. INTUNIV [Suspect]
     Active Substance: GUANFACINE HYDROCHLORIDE
     Indication: Attention deficit hyperactivity disorder
     Dates: start: 20211201, end: 20221115
  2. LAMICTAL [Concomitant]
     Active Substance: LAMOTRIGINE
  3. PROZAC [Concomitant]
     Active Substance: FLUOXETINE HYDROCHLORIDE
  4. ADDERALL [Concomitant]
     Active Substance: AMPHETAMINE ASPARTATE\AMPHETAMINE SULFATE\DEXTROAMPHETAMINE SACCHARATE\DEXTROAMPHETAMINE SULFATE
  5. ZYPREXA [Concomitant]
     Active Substance: OLANZAPINE
  6. PEPCID [Concomitant]
     Active Substance: FAMOTIDINE

REACTIONS (6)
  - Headache [None]
  - Migraine [None]
  - Condition aggravated [None]
  - Blood pressure decreased [None]
  - Therapy change [None]
  - Disease recurrence [None]

NARRATIVE: CASE EVENT DATE: 20220531
